FAERS Safety Report 24650614 (Version 2)
Quarter: 2024Q4

REPORT INFORMATION
  Report Type: Spontaneous
  Country: US (occurrence: US)
  Receive Date: 20241122
  Receipt Date: 20241227
  Transmission Date: 20250114
  Serious: No
  Sender: CASPER PHARMA
  Company Number: US-CASPERPHARMA-US-2024RISSPO00450

PATIENT
  Sex: Female

DRUGS (1)
  1. CHLORTHALIDONE [Suspect]
     Active Substance: CHLORTHALIDONE
     Indication: Product used for unknown indication
     Route: 048

REACTIONS (1)
  - Headache [Unknown]
